FAERS Safety Report 6444571-2 (Version None)
Quarter: 2009Q4

REPORT INFORMATION
  Report Type: 
  Country: None (occurrence: None)
  Receive Date: 20091118
  Receipt Date: 20091110
  Transmission Date: 20100525
  Serious: No
  Sender: FDA-Public Use
  Company Number: A0806924A

PATIENT
  Age: 79 Year
  Sex: Female

DRUGS (3)
  1. COREG CR [Suspect]
     Dosage: 1CAP PER DAY
     Route: 048
     Dates: start: 20060101
  2. LISINOPRIL [Concomitant]
  3. LASIX [Concomitant]

REACTIONS (3)
  - GLOSSODYNIA [None]
  - PRODUCT QUALITY ISSUE [None]
  - THROAT IRRITATION [None]
